FAERS Safety Report 9508012 (Version 4)
Quarter: 2013Q4

REPORT INFORMATION
  Report Type: Spontaneous
  Country: US (occurrence: US)
  Receive Date: 20130909
  Receipt Date: 20131122
  Transmission Date: 20140711
  Serious: Yes (Death, Hospitalization)
  Sender: FDA-Public Use
  Company Number: US-CELGENEUS-163-21880-13090590

PATIENT
  Age: 70 Year
  Sex: Female

DRUGS (1)
  1. REVLIMID [Suspect]
     Indication: AMYLOIDOSIS
     Dosage: 5 MILLIGRAM
     Route: 048
     Dates: start: 20130821, end: 2013

REACTIONS (2)
  - Amyloidosis [Fatal]
  - Cardiac failure [Fatal]
